FAERS Safety Report 7371349-8 (Version None)
Quarter: 2011Q1

REPORT INFORMATION
  Report Type: 
  Country: None (occurrence: None)
  Receive Date: 20110318
  Receipt Date: 20110318
  Transmission Date: 20110831
  Serious: Yes (Life-Threatening, Hospitalization)
  Sender: FDA-Public Use
  Company Number: None

PATIENT
  Age: 32 Year
  Sex: Female
  Weight: 80.2867 kg

DRUGS (1)
  1. PING PUMP ANIMAS [Suspect]
     Indication: GESTATIONAL DIABETES
     Dosage: SQ
     Route: 058
     Dates: start: 20110302, end: 20110304

REACTIONS (3)
  - INCORRECT DOSE ADMINISTERED [None]
  - OVERDOSE [None]
  - DRUG EXPOSURE DURING PREGNANCY [None]
